FAERS Safety Report 11964604 (Version 1)
Quarter: 2016Q1

REPORT INFORMATION
  Report Type: Spontaneous
  Country: US (occurrence: None)
  Receive Date: 20160125
  Receipt Date: 20160125
  Transmission Date: 20160526
  Serious: No
  Sender: FDA-Public Use
  Company Number: None

PATIENT
  Age: 16 Year
  Sex: Female
  Weight: 74.84 kg

DRUGS (2)
  1. GENERIC INTUNIV GUANFACINE HCL ER 3MG [Suspect]
     Active Substance: GUANFACINE HYDROCHLORIDE
     Indication: ATTENTION DEFICIT/HYPERACTIVITY DISORDER
     Route: 048
     Dates: start: 20151204, end: 20151228
  2. CONCERTA [Concomitant]
     Active Substance: METHYLPHENIDATE HYDROCHLORIDE

REACTIONS (8)
  - Anxiety [None]
  - Quality of life decreased [None]
  - Aggression [None]
  - Anger [None]
  - Product substitution issue [None]
  - Insomnia [None]
  - Emotional disorder [None]
  - Judgement impaired [None]

NARRATIVE: CASE EVENT DATE: 20151203
